FAERS Safety Report 15699003 (Version 1)
Quarter: 2018Q4

REPORT INFORMATION
  Report Type: Spontaneous
  Country: US (occurrence: US)
  Receive Date: 20181207
  Receipt Date: 20181207
  Transmission Date: 20190205
  Serious: Yes (Other)
  Sender: FDA-Public Use
  Company Number: None

PATIENT
  Age: 75 Year
  Sex: Female
  Weight: 55.8 kg

DRUGS (2)
  1. SYNTHROID [Suspect]
     Active Substance: LEVOTHYROXINE SODIUM
     Indication: HYPOTHYROIDISM
     Dosage: ?          QUANTITY:1 TABLET(S);?
     Route: 048
     Dates: start: 20181024, end: 20181130
  2. SULPHA DRUGS [Concomitant]
     Active Substance: UNSPECIFIED INGREDIENT

REACTIONS (9)
  - Ocular discomfort [None]
  - Head discomfort [None]
  - Product substitution issue [None]
  - Stress [None]
  - Sleep deficit [None]
  - Feeling abnormal [None]
  - Hot flush [None]
  - Palpitations [None]
  - Pain [None]

NARRATIVE: CASE EVENT DATE: 20181128
